FAERS Safety Report 18396916 (Version 1)
Quarter: 2020Q4

REPORT INFORMATION
  Report Type: Spontaneous
  Country: SE (occurrence: SE)
  Receive Date: 20201019
  Receipt Date: 20201019
  Transmission Date: 20210114
  Serious: Yes (Hospitalization, Other)
  Sender: FDA-Public Use
  Company Number: SE-LUPIN PHARMACEUTICALS INC.-2020-07628

PATIENT
  Sex: Male
  Weight: 2.09 kg

DRUGS (11)
  1. ANTI-D IMMUNOGLOBULIN [Suspect]
     Active Substance: HUMAN RHO(D) IMMUNE GLOBULIN
     Indication: RHESUS ANTIGEN NEGATIVE
     Dosage: UNK
     Route: 064
     Dates: start: 202003
  2. DALTEPARIN [Suspect]
     Active Substance: DALTEPARIN
     Indication: THROMBOSIS PROPHYLAXIS
     Dosage: 7500 UNITS
     Route: 064
     Dates: start: 20200417
  3. OXYCODONE [Suspect]
     Active Substance: OXYCODONE
     Indication: ANALGESIC THERAPY
     Dosage: UNK
     Route: 064
     Dates: start: 20200417
  4. BETAMETHASONE. [Suspect]
     Active Substance: BETAMETHASONE
     Dosage: 6 MILLIGRAM UNK
     Route: 064
     Dates: start: 202004, end: 202004
  5. BETAMETHASONE. [Suspect]
     Active Substance: BETAMETHASONE
     Dosage: 3 MILLIGRAM UNK
     Route: 064
     Dates: start: 202004, end: 202004
  6. BETAMETHASONE. [Suspect]
     Active Substance: BETAMETHASONE
     Dosage: 4 MILLIGRAM UNK
     Route: 064
     Dates: start: 202004, end: 202004
  7. PARACETAMOL [Suspect]
     Active Substance: ACETAMINOPHEN
     Indication: ANALGESIC THERAPY
     Dosage: UNK
     Route: 064
     Dates: start: 20200417
  8. LEVOTHYROXINE. [Suspect]
     Active Substance: LEVOTHYROXINE
     Indication: HYPOTHYROIDISM
     Dosage: 150 MICROGRAM QD
     Route: 064
  9. CEFOTAXIME [Suspect]
     Active Substance: CEFOTAXIME SODIUM
     Indication: BACTERIAL INFECTION
     Dosage: 2 GRAM TID
     Route: 064
     Dates: start: 20200422
  10. MORPHINE [Suspect]
     Active Substance: MORPHINE
     Indication: ANALGESIC THERAPY
     Dosage: 7.5 MILLIGRAM UNK
     Route: 064
     Dates: start: 202004, end: 202004
  11. BETAMETHASONE. [Suspect]
     Active Substance: BETAMETHASONE
     Indication: MATERNAL THERAPY TO ENHANCE FOETAL LUNG MATURITY
     Dosage: 12 MILLIGRAM UNK
     Route: 064

REACTIONS (8)
  - Foetal exposure during pregnancy [Unknown]
  - Metabolic acidosis [Unknown]
  - Hypotonia [Unknown]
  - Low birth weight baby [Unknown]
  - Premature baby [Unknown]
  - Respiratory acidosis [Unknown]
  - Dyspnoea [Unknown]
  - Movement disorder [Unknown]
